FAERS Safety Report 16362792 (Version 2)
Quarter: 2021Q1

REPORT INFORMATION
  Report Type: Report from Study
  Country: ES (occurrence: ES)
  Receive Date: 20190528
  Receipt Date: 20210224
  Transmission Date: 20210419
  Serious: Yes (Death, Hospitalization, Disabling, Other)
  Sender: FDA-Public Use
  Company Number: ES-AMGEN-ESPNI2019077969

PATIENT
  Age: 86 Year
  Sex: Female
  Weight: 63.6 kg

DRUGS (16)
  1. ETELCALCETIDE [Suspect]
     Active Substance: ETELCALCETIDE
     Indication: HYPERPARATHYROIDISM SECONDARY
     Dosage: 5 MILLIGRAM
     Route: 042
     Dates: start: 20180630
  2. MIRCERA [Concomitant]
     Active Substance: METHOXY POLYETHYLENE GLYCOL-EPOETIN BETA
     Dosage: 200 MILLIGRAM
     Route: 042
     Dates: start: 20161224
  3. FLUSONAL [Concomitant]
     Active Substance: FLUTICASONE PROPIONATE
     Dosage: 500 MILLIGRAM
     Dates: start: 20141101
  4. ESOMEPRAZOL [ESOMEPRAZOLE] [Concomitant]
     Active Substance: ESOMEPRAZOLE
     Dosage: 40 MILLIGRAM
     Route: 048
     Dates: start: 20161014
  5. ZEMPLAR [Concomitant]
     Active Substance: PARICALCITOL
     Dosage: 1.5 UNK
     Route: 042
     Dates: start: 20190215
  6. ADIRO [Concomitant]
     Active Substance: ASPIRIN
     Dosage: 100 MILLIGRAM
     Route: 048
     Dates: start: 20141101
  7. MIRTAZAPINA [Concomitant]
     Active Substance: MIRTAZAPINE
     Dosage: 15 MILLIGRAM
     Route: 048
     Dates: start: 20180419, end: 20190514
  8. PARACETAMOL [Concomitant]
     Active Substance: ACETAMINOPHEN
     Dosage: 1 GRAM
     Route: 042
     Dates: start: 20181006
  9. SEVELAMER [Concomitant]
     Active Substance: SEVELAMER
     Dosage: 800 MILLIGRAM
     Route: 048
     Dates: start: 20150421
  10. NITRO?DUR [Concomitant]
     Active Substance: NITROGLYCERIN
     Dosage: 80 MILLIGRAM
     Dates: start: 20150419
  11. PALEXIA [Concomitant]
     Active Substance: TAPENTADOL HYDROCHLORIDE
     Dosage: 25 MILLIGRAM
     Dates: start: 20150402
  12. FERIV [Concomitant]
     Dosage: 1 UNK
     Route: 042
     Dates: start: 20180414
  13. BISOPROLOL [Concomitant]
     Active Substance: BISOPROLOL
     Dosage: 2.5 MILLIGRAM
     Route: 048
     Dates: start: 20141217
  14. OPTOVITE B12 [Concomitant]
     Active Substance: CYANOCOBALAMIN
     Dosage: 1 UNK
     Route: 042
     Dates: start: 20180630
  15. ACIDO FOLICO ASPOL [Concomitant]
     Dosage: 10 MILLIGRAM
     Route: 048
     Dates: start: 20180630
  16. PLANTABEN [PLANTAGO OVATA] [Concomitant]
     Dosage: 3500 MILLIGRAM
     Route: 048
     Dates: start: 20141101

REACTIONS (3)
  - Foot fracture [Recovered/Resolved]
  - Intestinal ischaemia [Fatal]
  - Lower gastrointestinal haemorrhage [Recovered/Resolved]

NARRATIVE: CASE EVENT DATE: 20190429
